FAERS Safety Report 14015674 (Version 2)
Quarter: 2017Q4

REPORT INFORMATION
  Report Type: Spontaneous
  Country: KR (occurrence: KR)
  Receive Date: 20170927
  Receipt Date: 20171003
  Transmission Date: 20180321
  Serious: Yes (Hospitalization, Other)
  Sender: FDA-Public Use
  Company Number: KR-SA-2017SA176878

PATIENT
  Age: 56 Year
  Sex: Female
  Weight: 70 kg

DRUGS (1)
  1. FABRAZYME [Suspect]
     Active Substance: AGALSIDASE BETA
     Indication: FABRY^S DISEASE
     Dosage: DOSE: 2.5 VIAL
     Route: 041
     Dates: start: 2012

REACTIONS (3)
  - Cellulitis [Not Recovered/Not Resolved]
  - Bone infarction [Unknown]
  - Hip surgery [Unknown]

NARRATIVE: CASE EVENT DATE: 2016
